FAERS Safety Report 24140788 (Version 1)
Quarter: 2024Q3

REPORT INFORMATION
  Report Type: Other
  Country: GB (occurrence: GB)
  Receive Date: 20240726
  Receipt Date: 20240726
  Transmission Date: 20241016
  Serious: Yes (Other)
  Sender: MACLEODS
  Company Number: None

PATIENT

DRUGS (5)
  1. RIZATRIPTAN [Suspect]
     Active Substance: RIZATRIPTAN
     Indication: Migraine
     Dosage: 5MG AS REQUIRED
     Route: 065
  2. PROPRANOLOL [Concomitant]
     Active Substance: PROPRANOLOL HYDROCHLORIDE
     Indication: Migraine
  3. ESTRADIOL [Concomitant]
     Active Substance: ESTRADIOL
     Indication: Artificial menopause
  4. UTROGESTAN [Concomitant]
     Active Substance: PROGESTERONE
     Indication: Artificial menopause
  5. TESTOSTERONE [Concomitant]
     Active Substance: TESTOSTERONE
     Indication: Artificial menopause

REACTIONS (2)
  - Chest discomfort [Not Recovered/Not Resolved]
  - Palpitations [Not Recovered/Not Resolved]

NARRATIVE: CASE EVENT DATE: 20240716
